FAERS Safety Report 5366922-2 (Version None)
Quarter: 2007Q2

REPORT INFORMATION
  Report Type: 
  Country: None (occurrence: None)
  Receive Date: 20070622
  Receipt Date: 20070315
  Transmission Date: 20071010
  Serious: No
  Sender: FDA-Public Use
  Company Number: US-ASTRAZENECA-2007UW05153

PATIENT
  Age: 49 Year
  Sex: Male
  Weight: 86.2 kg

DRUGS (2)
  1. RHINOCORT [Suspect]
     Indication: NASAL CONGESTION
     Route: 045
     Dates: start: 20070201
  2. GLUCOVANCE [Concomitant]

REACTIONS (1)
  - AGEUSIA [None]
